FAERS Safety Report 8222016 (Version 5)
Quarter: 2012Q4

REPORT INFORMATION
  Report Type: 
  Country: US (occurrence: US)
  Receive Date: 20111102
  Receipt Date: 20121010
  Transmission Date: 20130627
  Serious: Yes (Hospitalization, Other)
  Sender: FDA-Public Use
  Company Number: US-ASTRAZENECA-2011SE64770

PATIENT
  Age: 72 Year
  Sex: Female

DRUGS (8)
  1. ARIMIDEX [Suspect]
     Route: 048
  2. NEXIUM [Suspect]
     Route: 048
  3. PRILOSEC [Suspect]
     Route: 048
  4. OXYCODONE [Suspect]
     Route: 065
  5. CARDIOVAC [Concomitant]
  6. FLOMYCIN [Concomitant]
  7. LIPITOR [Concomitant]
  8. NEURONTIN [Concomitant]

REACTIONS (14)
  - Road traffic accident [Unknown]
  - Breast cancer female [Unknown]
  - Gallbladder disorder [Unknown]
  - Cardiac disorder [Unknown]
  - Myocardial infarction [Unknown]
  - Joint injury [Unknown]
  - Tendon injury [Unknown]
  - Muscle injury [Unknown]
  - Pneumonia [Unknown]
  - Fall [Unknown]
  - Arthropathy [Unknown]
  - Back injury [Unknown]
  - Malaise [Unknown]
  - Somnolence [Unknown]
